FAERS Safety Report 6654578-8 (Version None)
Quarter: 2010Q1

REPORT INFORMATION
  Report Type: 
  Country: None (occurrence: None)
  Receive Date: 20100326
  Receipt Date: 20100317
  Transmission Date: 20100710
  Serious: Yes (Other)
  Sender: FDA-Public Use
  Company Number: US-ROCHE-693120

PATIENT
  Sex: Male
  Weight: 68 kg

DRUGS (3)
  1. PEGASYS [Suspect]
     Indication: HEPATITIS C
     Dosage: TEMPORARILY STOPPED
     Route: 058
     Dates: start: 20090101
  2. RIBAVIRIN [Suspect]
     Indication: HEPATITIS C
     Dosage: TEMPORARILY STOPPED
     Route: 048
     Dates: start: 20090101
  3. COUMADIN [Concomitant]

REACTIONS (1)
  - GALLBLADDER OPERATION [None]
